FAERS Safety Report 24359125 (Version 1)
Quarter: 2024Q3

REPORT INFORMATION
  Report Type: Spontaneous
  Country: US (occurrence: US)
  Receive Date: 20240924
  Receipt Date: 20240924
  Transmission Date: 20241016
  Serious: No
  Sender: BRISTOL MYERS SQUIBB
  Company Number: US-BRISTOL-MYERS SQUIBB COMPANY-2024-149009

PATIENT
  Age: 74 Year
  Sex: Male

DRUGS (1)
  1. POMALYST [Suspect]
     Active Substance: POMALIDOMIDE
     Indication: Blood disorder
     Dosage: FREQUENCY: 1 -21 OF EACH CHEMO CYCLE DONT BREAK
     Route: 048

REACTIONS (2)
  - Fatigue [Recovering/Resolving]
  - Off label use [Unknown]
